FAERS Safety Report 9092588 (Version 2)
Quarter: 2013Q1

REPORT INFORMATION
  Report Type: Report from Study
  Country: US (occurrence: US)
  Receive Date: 20130201
  Receipt Date: 20130207
  Transmission Date: 20140127
  Serious: Yes (Other)
  Sender: FDA-Public Use
  Company Number: US-ROCHE-1186582

PATIENT
  Age: 56 Year
  Sex: Male

DRUGS (3)
  1. PEGASYS [Suspect]
     Indication: HEPATITIS C
     Route: 058
     Dates: start: 20121130, end: 20130116
  2. RIBAVIRIN [Concomitant]
     Indication: HEPATITIS C
     Route: 048
     Dates: start: 20121130, end: 20130116
  3. BOCEPREVIR [Concomitant]
     Indication: HEPATITIS C
     Route: 048
     Dates: start: 20130104, end: 20130116

REACTIONS (1)
  - Ascites [Not Recovered/Not Resolved]
